FAERS Safety Report 4827889-6 (Version None)
Quarter: 2005Q4

REPORT INFORMATION
  Report Type: 
  Country: None (occurrence: None)
  Receive Date: 20051110
  Receipt Date: 20051102
  Transmission Date: 20060501
  Serious: Yes (Death, Hospitalization)
  Sender: FDA-Public Use
  Company Number: USA0511112612

PATIENT
  Sex: Male

DRUGS (2)
  1. HUMULIN R [Suspect]
  2. NOVOLOG [Concomitant]

REACTIONS (1)
  - HOSPITALISATION [None]
